FAERS Safety Report 8816353 (Version 1)
Quarter: 2012Q4

REPORT INFORMATION
  Report Type: Spontaneous
  Country: US (occurrence: None)
  Receive Date: 20120927
  Receipt Date: 20120927
  Transmission Date: 20130627
  Serious: No
  Sender: FDA-Public Use
  Company Number: None

PATIENT
  Age: 75 Year
  Sex: Male
  Weight: 81.65 kg

DRUGS (16)
  1. CLOPIDOGREL [Suspect]
     Indication: ATRIAL FIBRILLATION
     Route: 048
     Dates: start: 20120725
  2. METOPROLOL [Concomitant]
  3. ALLOPURINOL [Concomitant]
  4. K DUR [Concomitant]
  5. FOLIC ACID [Concomitant]
  6. FES04 [Concomitant]
  7. DIOVAN [Concomitant]
  8. FUROSEMIDE [Concomitant]
  9. CYMBALTA [Concomitant]
  10. AMLODOPINE [Concomitant]
  11. DOXAZOSIN [Concomitant]
  12. VIT D [Concomitant]
  13. GABAPINTIN [Concomitant]
  14. TRAMADE [Concomitant]
  15. CALEITROL [Concomitant]
  16. DIGOXIN [Concomitant]

REACTIONS (4)
  - Product substitution issue [None]
  - Rash [None]
  - Rash [None]
  - Urticaria [None]
